FAERS Safety Report 24242962 (Version 1)
Quarter: 2024Q3

REPORT INFORMATION
  Report Type: Spontaneous
  Country: US (occurrence: None)
  Receive Date: 20240822
  Receipt Date: 20240822
  Transmission Date: 20241016
  Serious: No
  Sender: Public
  Company Number: None

PATIENT
  Age: 65 Year
  Sex: Female
  Weight: 105.75 kg

DRUGS (12)
  1. ZEPBOUND [Suspect]
     Active Substance: TIRZEPATIDE
     Indication: Obesity
     Dates: start: 20240311
  2. PROTONIX [Concomitant]
     Active Substance: PANTOPRAZOLE SODIUM
  3. CRESTOR [Concomitant]
     Active Substance: ROSUVASTATIN CALCIUM
  4. ZOLOFT [Concomitant]
     Active Substance: SERTRALINE HYDROCHLORIDE
  5. GABAPENTIN [Concomitant]
  6. Zepbound [Concomitant]
  7. TIZANIDINE [Concomitant]
  8. NORTRIPTYLINE [Concomitant]
  9. XYZAL [Concomitant]
  10. ESTRACE [Concomitant]
     Active Substance: ESTRADIOL
  11. LOSARTAN [Concomitant]
  12. VITAMIN D [Concomitant]
     Active Substance: VITAMIN D NOS

REACTIONS (5)
  - Contusion [None]
  - Haemorrhage [None]
  - Rash [None]
  - Wound [None]
  - Drug titration [None]

NARRATIVE: CASE EVENT DATE: 20240822
